FAERS Safety Report 23315882 (Version 2)
Quarter: 2024Q1

REPORT INFORMATION
  Report Type: Report from Study
  Country: CN (occurrence: CN)
  Receive Date: 20231219
  Receipt Date: 20240117
  Transmission Date: 20240410
  Serious: No
  Sender: FDA-Public Use
  Company Number: CN-PFIZER INC-PV202300202937

PATIENT
  Age: 61 Year
  Sex: Male
  Weight: 65 kg

DRUGS (25)
  1. NIRMATRELVIR\RITONAVIR [Suspect]
     Active Substance: NIRMATRELVIR\RITONAVIR
     Indication: COVID-19
     Dosage: UNK
     Route: 048
     Dates: start: 20220430, end: 20220430
  2. NIRMATRELVIR\RITONAVIR [Suspect]
     Active Substance: NIRMATRELVIR\RITONAVIR
     Dosage: [NIRMATRELVIR 300MG]/[RITONAVIR 100MG], 2X/DAY
     Route: 048
     Dates: start: 20220430, end: 20220504
  3. NIRMATRELVIR\RITONAVIR [Suspect]
     Active Substance: NIRMATRELVIR\RITONAVIR
     Dosage: UNK
     Route: 048
     Dates: start: 20220514, end: 20220514
  4. NIRMATRELVIR\RITONAVIR [Suspect]
     Active Substance: NIRMATRELVIR\RITONAVIR
     Dosage: UNK
     Route: 048
     Dates: start: 20220514, end: 20220516
  5. URSODIOL [Concomitant]
     Active Substance: URSODIOL
     Indication: Prophylaxis
     Dosage: UNK
     Route: 048
     Dates: start: 20220429, end: 20220517
  6. PHOSPHOLIPID [Concomitant]
     Active Substance: PHOSPHOLIPID
     Indication: Prophylaxis
     Dosage: UNK
     Route: 048
     Dates: start: 20220429, end: 20220517
  7. FUROSEMIDE [Concomitant]
     Active Substance: FUROSEMIDE
     Indication: Polyuria
     Dosage: UNK
     Route: 048
     Dates: start: 20220429, end: 20220517
  8. SPIRONOLACTONE [Concomitant]
     Active Substance: SPIRONOLACTONE
     Indication: Polyuria
     Dosage: UNK
     Route: 048
     Dates: start: 20220429, end: 20220517
  9. POTASSIUM CHLORIDE [Concomitant]
     Active Substance: POTASSIUM CHLORIDE
     Indication: Mineral supplementation
     Dosage: SUSTAINED-RELEASE TABLETS
     Route: 048
     Dates: start: 20220430, end: 20220504
  10. POTASSIUM CHLORIDE [Concomitant]
     Active Substance: POTASSIUM CHLORIDE
     Dosage: SUSTAINED-RELEASE TABLETS
     Route: 048
     Dates: start: 20220430, end: 20220430
  11. XUAN FEI ZHI SOU [Concomitant]
     Indication: Cough
     Dosage: UNK
     Route: 048
     Dates: start: 20220502, end: 20220502
  12. XUAN FEI ZHI SOU [Concomitant]
     Dosage: UNK
     Route: 048
     Dates: start: 20220502, end: 20220503
  13. XUAN FEI ZHI SOU [Concomitant]
     Dosage: UNK
     Route: 048
     Dates: start: 20220504, end: 20220504
  14. XUAN FEI ZHI SOU [Concomitant]
     Dosage: UNK
     Route: 048
     Dates: start: 20220510, end: 20220515
  15. HEPARIN SODIUM [Concomitant]
     Active Substance: HEPARIN SODIUM
     Indication: Anticoagulant therapy
     Dosage: UNK
     Route: 058
     Dates: start: 20220503, end: 20220503
  16. NADROPARIN CALCIUM [Concomitant]
     Active Substance: NADROPARIN CALCIUM
     Indication: Anticoagulant therapy
     Dosage: NARDRAPARIN CALCIUM
     Route: 058
     Dates: start: 20220503, end: 20220517
  17. AMBROXOL HYDROCHLORIDE [Concomitant]
     Active Substance: AMBROXOL HYDROCHLORIDE
     Indication: Productive cough
     Dosage: UNK
     Route: 048
     Dates: start: 20220506, end: 20220506
  18. AMBROXOL HYDROCHLORIDE [Concomitant]
     Active Substance: AMBROXOL HYDROCHLORIDE
     Dosage: UNK
     Route: 048
     Dates: start: 20220506, end: 20220517
  19. THYMUS [THYMUS SPP.] [Concomitant]
     Indication: Prophylaxis
     Dosage: THYMUS METHOD
     Route: 042
     Dates: start: 20220515, end: 20220515
  20. THYMUS [THYMUS SPP.] [Concomitant]
     Dosage: THYMUS METHOD
     Route: 058
     Dates: start: 20220515, end: 20220517
  21. LIAN HUA QING KE [Concomitant]
     Indication: Heat therapy
     Dosage: LIAN HUA QING KE LI
     Route: 048
     Dates: start: 20220429, end: 202204
  22. LIAN HUA QING KE [Concomitant]
     Indication: Detoxification
  23. HERBALS [Concomitant]
     Active Substance: HERBALS
     Indication: Heat therapy
     Dosage: SHUANG HUANG LIAN KOU FU YE
     Route: 048
     Dates: start: 20220429, end: 202204
  24. HERBALS [Concomitant]
     Active Substance: HERBALS
     Indication: Detoxification
  25. GLYCERIN [Concomitant]
     Active Substance: GLYCERIN
     Indication: Bowel movement irregularity
     Dosage: ENEMA GLYCERINI
     Route: 050
     Dates: start: 20220510, end: 20220510

REACTIONS (1)
  - Overdose [Unknown]

NARRATIVE: CASE EVENT DATE: 20220514
